FAERS Safety Report 21433295 (Version 9)
Quarter: 2023Q2

REPORT INFORMATION
  Report Type: Spontaneous
  Country: CA (occurrence: CA)
  Receive Date: 20221010
  Receipt Date: 20230506
  Transmission Date: 20230722
  Serious: Yes (Other)
  Sender: FDA-Public Use
  Company Number: CA-CELLTRION INC.-2020CA033416

PATIENT

DRUGS (24)
  1. INFLECTRA [Suspect]
     Active Substance: INFLIXIMAB-DYYB
     Indication: Crohn^s disease
     Dosage: 419 MG FIRST DOSE IN HOSPITAL WEEKS
     Route: 042
     Dates: start: 20201106
  2. INFLECTRA [Suspect]
     Active Substance: INFLIXIMAB-DYYB
     Dosage: 1 DF, DOSAGE NOT AVAILABLE: RECEIVED IN HOSPITAL
     Route: 042
     Dates: start: 20201106, end: 20201106
  3. INFLECTRA [Suspect]
     Active Substance: INFLIXIMAB-DYYB
     Dosage: 419 MG EVERY 2 AND 6, THEN EVERY 8 WEEKS
     Route: 042
     Dates: start: 20201125
  4. INFLECTRA [Suspect]
     Active Substance: INFLIXIMAB-DYYB
     Dosage: 419 MG INDUCTION DOSES AT WEEK 2 AND 6, THEN EVERY 8 WEEKS
     Route: 042
     Dates: start: 20201125, end: 20201125
  5. INFLECTRA [Suspect]
     Active Substance: INFLIXIMAB-DYYB
     Dosage: 419 MG EVERY 2 AND 6, THEN EVERY 8 WEEKS
     Route: 042
     Dates: start: 20210217, end: 20210217
  6. INFLECTRA [Suspect]
     Active Substance: INFLIXIMAB-DYYB
     Dosage: 1 DF, WEEK 0 DOSE RECEIVED IN HOSPITAL
     Route: 042
     Dates: start: 20210217, end: 20210217
  7. INFLECTRA [Suspect]
     Active Substance: INFLIXIMAB-DYYB
     Dosage: 419 MG INDUCTION DOSES AT WEEK 2 AND 6, THEN EVERY 8 WEEKS
     Route: 042
     Dates: start: 20210313, end: 20220929
  8. INFLECTRA [Suspect]
     Active Substance: INFLIXIMAB-DYYB
     Dosage: 419 MG, EVERY 2 AND 6, THEN EVERY 8 WEEKS
     Route: 042
     Dates: start: 20210414
  9. INFLECTRA [Suspect]
     Active Substance: INFLIXIMAB-DYYB
     Dosage: 419 MG, EVERY 2 AND 6, THEN EVERY 8 WEEKS
     Route: 042
     Dates: start: 20210622
  10. INFLECTRA [Suspect]
     Active Substance: INFLIXIMAB-DYYB
     Dosage: 419 MG, EVERY 2 AND 6, THEN EVERY 8 WEEKS
     Route: 042
     Dates: start: 20210816
  11. INFLECTRA [Suspect]
     Active Substance: INFLIXIMAB-DYYB
     Dosage: 419 MG, EVERY 2 AND 6, THEN EVERY 8 WEEKS
     Route: 042
     Dates: start: 20211014
  12. INFLECTRA [Suspect]
     Active Substance: INFLIXIMAB-DYYB
     Dosage: 419 MG, EVERY 2 AND 6, THEN EVERY 8 WEEKS
     Route: 042
     Dates: start: 20211209
  13. INFLECTRA [Suspect]
     Active Substance: INFLIXIMAB-DYYB
     Dosage: 419 MG, EVERY 2 AND 6, THEN EVERY 8 WEEKS
     Route: 042
     Dates: start: 20220214
  14. INFLECTRA [Suspect]
     Active Substance: INFLIXIMAB-DYYB
     Dosage: 419 MG, EVERY 2 AND 6, THEN EVERY 8 WEEKS
     Route: 042
     Dates: start: 20220420
  15. INFLECTRA [Suspect]
     Active Substance: INFLIXIMAB-DYYB
     Dosage: 419 MG, EVERY 2 AND 6, THEN EVERY 8 WEEKS
     Route: 042
     Dates: start: 20220609
  16. INFLECTRA [Suspect]
     Active Substance: INFLIXIMAB-DYYB
     Dosage: 419 MG EVERY 2 AND 6, THEN EVERY 8 WEEKS
     Route: 042
     Dates: start: 20220804
  17. INFLECTRA [Suspect]
     Active Substance: INFLIXIMAB-DYYB
     Dosage: 419 MG EVERY 2 AND 6, THEN EVERY 8 WEEKS
     Route: 042
     Dates: start: 20220929
  18. INFLECTRA [Suspect]
     Active Substance: INFLIXIMAB-DYYB
     Dosage: 470 MG, EVERY 8 WEEKS (5 MG/KG)
     Route: 042
     Dates: start: 20221124
  19. INFLECTRA [Suspect]
     Active Substance: INFLIXIMAB-DYYB
     Dosage: 470 MG , (5 MG/KG)EVERY 8 WEEKS
     Route: 042
     Dates: start: 20221124, end: 20221124
  20. INFLECTRA [Suspect]
     Active Substance: INFLIXIMAB-DYYB
     Dosage: 470 MG, EVERY 8 WEEKS (5 MG/KG)
     Route: 042
     Dates: start: 20230202
  21. INFLECTRA [Suspect]
     Active Substance: INFLIXIMAB-DYYB
     Dosage: 930 MG (10MG/KG) EVERY 4 WEEKS
     Route: 042
     Dates: start: 20230202
  22. INFLECTRA [Suspect]
     Active Substance: INFLIXIMAB-DYYB
     Dosage: 930 MG, (10 MG/KG), EVERY 4 WEEKS
     Route: 042
     Dates: start: 20230313
  23. INFLECTRA [Suspect]
     Active Substance: INFLIXIMAB-DYYB
     Dosage: 940 MG (10 MG/KG) EVERY 4 WEEKS
     Route: 042
     Dates: start: 20230410
  24. INFLECTRA [Suspect]
     Active Substance: INFLIXIMAB-DYYB
     Dosage: 10 MG/KG EVERY 4 WEEKS
     Route: 042
     Dates: start: 20230410, end: 202304

REACTIONS (7)
  - Weight increased [Not Recovered/Not Resolved]
  - Off label use [Unknown]
  - Off label use [Unknown]
  - Intentional product use issue [Unknown]
  - Inappropriate schedule of product administration [Unknown]
  - Arthralgia [Unknown]
  - Condition aggravated [Not Recovered/Not Resolved]

NARRATIVE: CASE EVENT DATE: 20201125
